FAERS Safety Report 7575251-8 (Version None)
Quarter: 2011Q2

REPORT INFORMATION
  Report Type: 
  Country: None (occurrence: None)
  Receive Date: 20110627
  Receipt Date: 20110616
  Transmission Date: 20111010
  Serious: Yes (Hospitalization)
  Sender: FDA-Public Use
  Company Number: JP-ASTRAZENECA-2011SE35009

PATIENT
  Age: 83 Year
  Sex: Male
  Weight: 64 kg

DRUGS (8)
  1. SIGMART [Suspect]
     Indication: MYOCARDIAL ISCHAEMIA
     Route: 048
     Dates: start: 20110531, end: 20110608
  2. ASPIRIN [Suspect]
     Indication: MYOCARDIAL ISCHAEMIA
     Route: 048
     Dates: start: 20110531, end: 20110608
  3. DILTIAZEM HCL [Suspect]
     Indication: HYPERTENSION
     Route: 048
     Dates: start: 20110531, end: 20110608
  4. WARFARIN SODIUM [Suspect]
     Indication: THROMBOSIS
     Route: 048
     Dates: start: 20110531, end: 20110601
  5. RABEPRAZOLE SODIUM [Suspect]
     Indication: GASTRITIS
     Route: 048
     Dates: start: 20110531, end: 20110531
  6. CANDESARTAN CILEXETIL [Suspect]
     Indication: HYPERTENSION
     Route: 048
     Dates: start: 20110531, end: 20110608
  7. OMEPRAZOLE [Suspect]
     Indication: GASTRIC ULCER HAEMORRHAGE
     Route: 041
     Dates: start: 20110531, end: 20110601
  8. CARVEDILOL [Suspect]
     Indication: MYOCARDIAL ISCHAEMIA
     Route: 048
     Dates: start: 20110531, end: 20110608

REACTIONS (1)
  - EPILEPSY [None]
